FAERS Safety Report 17976370 (Version 1)
Quarter: 2020Q3

REPORT INFORMATION
  Report Type: Spontaneous
  Country: US (occurrence: US)
  Receive Date: 20200703
  Receipt Date: 20200703
  Transmission Date: 20201103
  Serious: No
  Sender: FDA-Public Use
  Company Number: US-009507513-2006USA011069

PATIENT
  Age: 77 Year
  Sex: Female

DRUGS (5)
  1. PRINIVIL [Suspect]
     Active Substance: LISINOPRIL
     Indication: HYPERTENSION
     Dosage: UNK
     Route: 048
     Dates: start: 2006
  2. PRINIVIL [Suspect]
     Active Substance: LISINOPRIL
     Indication: HYPERTENSION
     Dosage: 2 TABLETS ONCE DAILY
     Route: 048
     Dates: start: 2000
  3. SYNTHROID [Concomitant]
     Active Substance: LEVOTHYROXINE SODIUM
  4. GUANADREL SULFATE. [Concomitant]
     Active Substance: GUANADREL SULFATE
  5. ATENOLOL. [Concomitant]
     Active Substance: ATENOLOL
     Indication: HOT FLUSH

REACTIONS (5)
  - Palpitations [Recovered/Resolved]
  - Localised infection [Recovered/Resolved]
  - Arthralgia [Recovered/Resolved]
  - Upper limb fracture [Recovered/Resolved]
  - Fall [Recovered/Resolved]

NARRATIVE: CASE EVENT DATE: 2006
